FAERS Safety Report 25089799 (Version 1)
Quarter: 2025Q1

REPORT INFORMATION
  Report Type: Spontaneous
  Country: CA (occurrence: CA)
  Receive Date: 20250318
  Receipt Date: 20250318
  Transmission Date: 20250408
  Serious: Yes (Other)
  Sender: JOHNSON AND JOHNSON
  Company Number: CA-KENVUE-20250302166

PATIENT

DRUGS (21)
  1. IMODIUM [Interacting]
     Active Substance: LOPERAMIDE HYDROCHLORIDE
     Indication: Product used for unknown indication
     Route: 065
  2. HALOPERIDOL [Interacting]
     Active Substance: HALOPERIDOL
     Indication: Product used for unknown indication
     Route: 065
  3. RISPERDAL [Interacting]
     Active Substance: RISPERIDONE
     Indication: Product used for unknown indication
     Route: 065
  4. RISPERDAL [Interacting]
     Active Substance: RISPERIDONE
  5. RISPERDAL [Interacting]
     Active Substance: RISPERIDONE
  6. RISPERDAL [Interacting]
     Active Substance: RISPERIDONE
  7. RISPERDAL [Interacting]
     Active Substance: RISPERIDONE
  8. RISPERDAL [Interacting]
     Active Substance: RISPERIDONE
  9. CARBIDOPA\LEVODOPA [Interacting]
     Active Substance: CARBIDOPA\LEVODOPA
     Indication: Product used for unknown indication
     Route: 065
  10. AMITRIPTYLINE [Interacting]
     Active Substance: AMITRIPTYLINE
     Indication: Product used for unknown indication
     Route: 065
  11. DONEPEZIL [Interacting]
     Active Substance: DONEPEZIL
     Indication: Dementia
     Route: 065
  12. GALANTAMINE HYDROBROMIDE [Interacting]
     Active Substance: GALANTAMINE HYDROBROMIDE
     Indication: Dementia
     Route: 065
  13. MIRTAZAPINE [Interacting]
     Active Substance: MIRTAZAPINE
     Indication: Product used for unknown indication
     Route: 065
  14. OLANZAPINE [Interacting]
     Active Substance: OLANZAPINE
     Indication: Product used for unknown indication
     Route: 065
  15. OXYBUTYNIN [Interacting]
     Active Substance: OXYBUTYNIN
     Indication: Product used for unknown indication
     Route: 065
  16. PAROXETINE HYDROCHLORIDE [Interacting]
     Active Substance: PAROXETINE HYDROCHLORIDE
     Indication: Product used for unknown indication
     Route: 065
  17. QUETIAPINE FUMARATE [Interacting]
     Active Substance: QUETIAPINE FUMARATE
     Indication: Product used for unknown indication
     Route: 065
  18. RANITIDINE HYDROCHLORIDE [Interacting]
     Active Substance: RANITIDINE HYDROCHLORIDE
     Indication: Product used for unknown indication
     Route: 065
  19. RIVASTIGMINE TARTRATE [Interacting]
     Active Substance: RIVASTIGMINE TARTRATE
     Indication: Dementia
     Route: 065
  20. TOLTERODINE [Interacting]
     Active Substance: TOLTERODINE
     Indication: Product used for unknown indication
     Route: 065
  21. TRAZODONE HYDROCHLORIDE [Interacting]
     Active Substance: TRAZODONE HYDROCHLORIDE
     Indication: Product used for unknown indication
     Route: 065

REACTIONS (2)
  - Anticholinergic syndrome [Unknown]
  - Drug interaction [Unknown]
